FAERS Safety Report 6978239-0 (Version None)
Quarter: 2010Q3

REPORT INFORMATION
  Report Type: 
  Country: None (occurrence: None)
  Receive Date: 20100913
  Receipt Date: 20100901
  Transmission Date: 20110219
  Serious: Yes (Hospitalization)
  Sender: FDA-Public Use
  Company Number: DE-ELI_LILLY_AND_COMPANY-DE201009000021

PATIENT
  Sex: Female

DRUGS (4)
  1. FORTEO [Suspect]
     Indication: OSTEOPOROSIS
     Route: 058
     Dates: start: 20100301
  2. METHOTREXATE SODIUM [Concomitant]
     Dosage: UNK, UNKNOWN
     Route: 058
  3. CALCIUM [Concomitant]
     Dosage: UNK, UNKNOWN
  4. VITAMIN D [Concomitant]
     Dosage: UNK, UNKNOWN

REACTIONS (1)
  - CHOLECYSTECTOMY [None]
